FAERS Safety Report 22961779 (Version 3)
Quarter: 2023Q4

REPORT INFORMATION
  Report Type: Spontaneous
  Country: US (occurrence: US)
  Receive Date: 20230920
  Receipt Date: 20231010
  Transmission Date: 20240110
  Serious: No
  Sender: FDA-Public Use
  Company Number: US-GLAXOSMITHKLINE-USCH2023AMR044740

PATIENT
  Sex: Female
  Weight: 64.8 kg

DRUGS (3)
  1. ADVIL [Suspect]
     Active Substance: IBUPROFEN
     Indication: Migraine
     Dosage: 400 MG, (400 MG, PRN)
     Route: 048
     Dates: start: 20220101
  2. ADVIL [Suspect]
     Active Substance: IBUPROFEN
     Dosage: 200 MG, (200 MG, PRN)
     Route: 048
     Dates: start: 20230422
  3. MELATONIN [Concomitant]
     Active Substance: MELATONIN
     Indication: Sleep disorder
     Dosage: 9 MG
     Route: 048
     Dates: start: 20201101

REACTIONS (2)
  - Product use in unapproved indication [Unknown]
  - Overdose [Unknown]
